FAERS Safety Report 5578631-5 (Version None)
Quarter: 2007Q4

REPORT INFORMATION
  Report Type: 
  Country: None (occurrence: None)
  Receive Date: 20071228
  Receipt Date: 20071228
  Transmission Date: 20080405
  Serious: No
  Sender: FDA-Public Use
  Company Number: None

PATIENT
  Sex: Male
  Weight: 68.0396 kg

DRUGS (1)
  1. AMLODIPINE [Suspect]
     Dosage: 10MG TAB DAILY PO
     Route: 048

REACTIONS (2)
  - OEDEMA [None]
  - RASH [None]
